FAERS Safety Report 5079073-1 (Version None)
Quarter: 2006Q3

REPORT INFORMATION
  Report Type: 
  Country: None (occurrence: None)
  Receive Date: 20060808
  Receipt Date: 20060726
  Transmission Date: 20061208
  Serious: Yes (Hospitalization, Other)
  Sender: FDA-Public Use
  Company Number: 2006092825

PATIENT
  Age: 86 Year
  Sex: Male
  Weight: 62.5964 kg

DRUGS (4)
  1. DILANTIN [Suspect]
     Indication: CONVULSION
     Dosage: 300 MG (100 MG, DAILY)
     Dates: start: 20060531, end: 20060601
  2. HYDROXYUREA [Concomitant]
  3. ACETYLSALICYLIC ACID SRT [Concomitant]
  4. MULTIVITAMIN [Concomitant]

REACTIONS (14)
  - ABASIA [None]
  - ANTICONVULSANT DRUG LEVEL DECREASED [None]
  - COMMUNICATION DISORDER [None]
  - COORDINATION ABNORMAL [None]
  - DEHYDRATION [None]
  - DROOLING [None]
  - HYPERSENSITIVITY [None]
  - HYPOTHERMIA [None]
  - LOSS OF CONTROL OF LEGS [None]
  - MALAISE [None]
  - MOTOR DYSFUNCTION [None]
  - ORAL INTAKE REDUCED [None]
  - POSTURE ABNORMAL [None]
  - WEIGHT DECREASED [None]
